FAERS Safety Report 9314237 (Version 3)
Quarter: 2014Q2

REPORT INFORMATION
  Report Type: Spontaneous
  Country: JP (occurrence: None)
  Receive Date: 20130522
  Receipt Date: 20140408
  Transmission Date: 20141212
  Serious: Yes (Hospitalization, Other)
  Sender: FDA-Public Use
  Company Number: ADR-2013-00861

PATIENT
  Age: 33 Year
  Sex: Female

DRUGS (5)
  1. GABALON [Suspect]
  2. RISPERDAL [Concomitant]
  3. RIVOTRIL [Concomitant]
  4. ZYPREXA [Concomitant]
  5. DEPAS [Concomitant]

REACTIONS (3)
  - Schizophrenia [None]
  - Hallucination, auditory [None]
  - Ill-defined disorder [None]
